FAERS Safety Report 8073228-X (Version None)
Quarter: 2012Q1

REPORT INFORMATION
  Report Type: 
  Country: None (occurrence: None)
  Receive Date: 20120126
  Receipt Date: 20120118
  Transmission Date: 20120608
  Serious: Yes (Other)
  Sender: FDA-Public Use
  Company Number: PHHY2011US90380

PATIENT
  Age: 59 Year
  Sex: Female
  Weight: 86.8 kg

DRUGS (9)
  1. LETROZOLE [Suspect]
     Dosage: 2.5 MG, QD FOR SEVEN DAYS
     Route: 048
  2. ONDANSETRON [Concomitant]
     Dosage: 4 MG, UNK
     Route: 042
  3. ASCORBIC ACID [Concomitant]
  4. VITAMIN B6 [Concomitant]
  5. CALCIUM [Concomitant]
  6. METHADONE HCL [Interacting]
     Dosage: 6 MG, OVER 15 MIN
     Route: 040
  7. VITAMIN E [Concomitant]
  8. VITAMIN D [Concomitant]
  9. METOCLOPRAMIDE [Concomitant]
     Dosage: 10 MG, OVER 2 MIN
     Route: 040

REACTIONS (7)
  - RESPIRATORY DEPRESSION [None]
  - SOMNOLENCE [None]
  - HEADACHE [None]
  - DRUG INTERACTION [None]
  - NAUSEA [None]
  - OPIATES POSITIVE [None]
  - HYPOTENSION [None]
